FAERS Safety Report 10388846 (Version 1)
Quarter: 2014Q1

REPORT INFORMATION
  Report Type: Spontaneous
  Country: US (occurrence: None)
  Receive Date: 20140306
  Receipt Date: 20140306
  Transmission Date: 20141002
  Serious: Yes (Hospitalization, Other)
  Sender: FDA-Public Use
  Company Number: 163-21880-13100534

PATIENT
  Age: 57 Year
  Sex: Female

DRUGS (28)
  1. REVLIMID [Suspect]
     Indication: MYELODYSPLASTIC SYNDROME
     Route: 048
     Dates: start: 2006
  2. AUGMENTIN (CLAVULIN) [Concomitant]
  3. WELLBUTRIN HCL (BUPROPION HYDROCHLORIDE) [Concomitant]
  4. CYMBALTA (DULOXETINE HYDROCHLORIDE) [Concomitant]
  5. TRAMADOL [Concomitant]
  6. CELEBREX (CELECOXIB) [Concomitant]
  7. VOLTAREN (DICLOFENAC SODIUM) [Concomitant]
  8. NITROFURANTOIN [Concomitant]
  9. LEVAQUIN (LEVOFLOXACIN) [Concomitant]
  10. NEULASTA (PEGFILGRASTIM) [Concomitant]
  11. KLOR-CON (POTASSIUM CHLORDIE) [Concomitant]
  12. ACIPHEX (RABEPRAZOLE SODIUM) [Concomitant]
  13. ASPIRIN (ACETYLSALICYLIC ACID) [Concomitant]
  14. HYDROCHLOROTHIAZIDE [Concomitant]
  15. KOMBIGLYZE [Concomitant]
  16. LEVOTHYROXINE [Concomitant]
  17. MULTIVITAMINS [Concomitant]
  18. OXYBUTYNIN CHLORIDE (OXYBUTYNIN HYDROCHLORIDE) [Concomitant]
  19. SINGULAIR (MONTELUKAST) 10MG [Concomitant]
  20. SYMBICORT (SYMBICORT TURBUHALER ^DRACO^) [Concomitant]
  21. TOPAMAX (TOPIRAMATE) [Concomitant]
  22. WELCHOL (COLESEVELAM HYDROHCLORIDE) [Concomitant]
  23. XYZAL (LEVOCETIRIZINE DIHYDROCHLORIDE) [Concomitant]
  24. TRAZODONE [Concomitant]
  25. Z-PAK (AZITHROMYCIN) [Concomitant]
  26. AMOXICILLIN [Concomitant]
  27. TRAMADOL-ACETAMINOPHEN (ULTRACET) [Concomitant]
  28. VAGISIL [Concomitant]

REACTIONS (4)
  - Pancytopenia [None]
  - Neutrophil count decreased [None]
  - White blood cell count decreased [None]
  - Drug ineffective [None]
